FAERS Safety Report 20125992 (Version 1)
Quarter: 2021Q4

REPORT INFORMATION
  Report Type: Spontaneous
  Country: CL (occurrence: None)
  Receive Date: 20211124
  Receipt Date: 20211124
  Transmission Date: 20220303
  Serious: Yes (Disabling)
  Sender: FDA-Public Use
  Company Number: None

PATIENT

DRUGS (1)
  1. CALMURID [HYDROCORTISONE] [Suspect]
     Active Substance: HYDROCORTISONE\HYDROCORTISONE ACETATE\HYDROCORTISONE BUTYRATE\HYDROCORTISONE SODIUM PHOSPHATE\HYDROC
     Indication: Dermatitis atopic
     Dosage: OTHER STRENGTH : 1%;?

REACTIONS (4)
  - Pregnancy [None]
  - Exposure during pregnancy [None]
  - Rebound atopic dermatitis [None]
  - Insomnia [None]

NARRATIVE: CASE EVENT DATE: 20130108
